FAERS Safety Report 14479545 (Version 1)
Quarter: 2018Q1

REPORT INFORMATION
  Report Type: Report from Study
  Country: US (occurrence: US)
  Receive Date: 20180202
  Receipt Date: 20180202
  Transmission Date: 20180509
  Serious: No
  Sender: FDA-Public Use
  Company Number: PHEH2018US003445

PATIENT
  Age: 60 Year
  Sex: Female

DRUGS (3)
  1. MEKINIST [Suspect]
     Active Substance: TRAMETINIB DIMETHYL SULFOXIDE
     Indication: METASTASES TO LIVER
  2. MEKINIST [Suspect]
     Active Substance: TRAMETINIB DIMETHYL SULFOXIDE
     Indication: CHOLANGIOCARCINOMA
     Dosage: 2 MG, QD
     Route: 048
     Dates: start: 20171024
  3. MEKINIST [Suspect]
     Active Substance: TRAMETINIB DIMETHYL SULFOXIDE
     Indication: METASTASES TO LUNG

REACTIONS (4)
  - Product use in unapproved indication [Unknown]
  - Hepatic enzyme increased [Recovered/Resolved]
  - Rash [Recovering/Resolving]
  - Platelet count decreased [Recovered/Resolved]

NARRATIVE: CASE EVENT DATE: 20171024
